FAERS Safety Report 6196276-3 (Version None)
Quarter: 2009Q2

REPORT INFORMATION
  Report Type: 
  Country: None (occurrence: None)
  Receive Date: 20090518
  Receipt Date: 20090506
  Transmission Date: 20091009
  Serious: Yes (Other)
  Sender: FDA-Public Use
  Company Number: 2009-01857

PATIENT
  Age: 48 Year
  Sex: Female
  Weight: 70 kg

DRUGS (3)
  1. VELCADE [Suspect]
     Indication: MULTIPLE MYELOMA
     Dosage: 1.7 MG, INTRAVENOUS
     Route: 042
     Dates: start: 20090324
  2. FLUDARABINE PHOSPHATE [Suspect]
     Indication: MULTIPLE MYELOMA
     Dosage: 50 MG, INTRAVENOUS
     Route: 042
     Dates: start: 20090419
  3. ALKERAN [Suspect]
     Indication: MULTIPLE MYELOMA
     Dosage: 106 MG, INTRAVENOUS
     Route: 042
     Dates: start: 20090419

REACTIONS (3)
  - ACUTE POLYNEUROPATHY [None]
  - HYPOTENSION [None]
  - LOSS OF CONSCIOUSNESS [None]
